FAERS Safety Report 16139113 (Version 1)
Quarter: 2019Q2

REPORT INFORMATION
  Report Type: Spontaneous
  Country: FR (occurrence: FR)
  Receive Date: 20190401
  Receipt Date: 20190401
  Transmission Date: 20190711
  Serious: Yes (Hospitalization, Other)
  Sender: FDA-Public Use
  Company Number: FR-AUROBINDO-AUR-APL-2019-017073

PATIENT

DRUGS (2)
  1. PREVISCAN (FLUINDIONE) [Interacting]
     Active Substance: FLUINDIONE
     Indication: ARTERIOSCLEROSIS
     Dosage: UNK (INR TARGET: 2 TO 3)
     Route: 048
     Dates: start: 201810, end: 20190301
  2. VENLAFAXINE [Suspect]
     Active Substance: VENLAFAXINE HYDROCHLORIDE
     Indication: DEPRESSION
     Dosage: 37.5 MILLIGRAM, DAILY
     Route: 048
     Dates: start: 201810, end: 20190301

REACTIONS (1)
  - Subdural haematoma [Not Recovered/Not Resolved]

NARRATIVE: CASE EVENT DATE: 20190301
